FAERS Safety Report 17452207 (Version 1)
Quarter: 2020Q1

REPORT INFORMATION
  Report Type: Spontaneous
  Country: US (occurrence: US)
  Receive Date: 20200224
  Receipt Date: 20200224
  Transmission Date: 20200409
  Serious: No
  Sender: FDA-Public Use
  Company Number: US-EMD SERONO-9145905

PATIENT
  Sex: Female

DRUGS (1)
  1. REBIF [Suspect]
     Active Substance: INTERFERON BETA-1A
     Indication: PRODUCT USED FOR UNKNOWN INDICATION

REACTIONS (18)
  - Ataxia [Unknown]
  - Rash [Unknown]
  - Gait disturbance [Unknown]
  - Back disorder [Unknown]
  - Nervousness [Unknown]
  - Hyperhidrosis [Unknown]
  - Headache [Unknown]
  - Thyroid disorder [Unknown]
  - Arthritis [Unknown]
  - Hypoaesthesia [Unknown]
  - Pain [Unknown]
  - Amnesia [Unknown]
  - Muscle spasms [Unknown]
  - Paraesthesia [Unknown]
  - Fatigue [Unknown]
  - Hypertension [Unknown]
  - Cough [Unknown]
  - Neck pain [Unknown]
